FAERS Safety Report 6019925-9 (Version None)
Quarter: 2008Q4

REPORT INFORMATION
  Report Type: 
  Country: None (occurrence: None)
  Receive Date: 20081223
  Receipt Date: 20081209
  Transmission Date: 20090506
  Serious: Yes (Hospitalization)
  Sender: FDA-Public Use
  Company Number: GXKR2008US11793

PATIENT
  Age: 56 Year
  Sex: Male

DRUGS (3)
  1. QUETIAPINE (NGX) (QUETIAPINE) UNKNOWN, 400MG [Suspect]
     Dosage: ORAL
     Route: 048
  2. METHADONE (NGX) (METHADONE) TABLET, 90MG [Suspect]
     Dosage: ORAL
     Route: 048
  3. PAROXETINE HCL [Concomitant]

REACTIONS (17)
  - ALKALOSIS [None]
  - BLOOD PRESSURE DECREASED [None]
  - HEART RATE INCREASED [None]
  - HYPERVENTILATION [None]
  - HYPONATRAEMIA [None]
  - HYPOVOLAEMIA [None]
  - METABOLIC ACIDOSIS [None]
  - METABOLIC ALKALOSIS [None]
  - MYDRIASIS [None]
  - RENAL FAILURE ACUTE [None]
  - RENAL INJURY [None]
  - RESPIRATORY ALKALOSIS [None]
  - RESPIRATORY RATE INCREASED [None]
  - SOMNOLENCE [None]
  - SUICIDE ATTEMPT [None]
  - TACHYCARDIA [None]
  - VOMITING [None]
